FAERS Safety Report 10749832 (Version 1)
Quarter: 2015Q1

REPORT INFORMATION
  Report Type: Spontaneous
  Country: CN (occurrence: CN)
  Receive Date: 20150129
  Receipt Date: 20150129
  Transmission Date: 20150721
  Serious: Yes (Other)
  Sender: FDA-Public Use
  Company Number: CN-GLAXOSMITHKLINE-CN2015010531

PATIENT

DRUGS (3)
  1. VIREAD [Suspect]
     Active Substance: TENOFOVIR DISOPROXIL FUMARATE
     Indication: ACQUIRED IMMUNODEFICIENCY SYNDROME
     Dosage: 0.3 G, QD
     Route: 048
     Dates: start: 20140305, end: 20140911
  2. HEPTODIN [Suspect]
     Active Substance: LAMIVUDINE
     Indication: ACQUIRED IMMUNODEFICIENCY SYNDROME
     Dosage: 0.3 G, QD
     Route: 048
     Dates: start: 20140305, end: 20140811
  3. EFAVIRENZ [Suspect]
     Active Substance: EFAVIRENZ
     Indication: ACQUIRED IMMUNODEFICIENCY SYNDROME
     Dosage: 0.6 G, QD
     Route: 048
     Dates: start: 20140305, end: 20140911

REACTIONS (1)
  - Hepatocellular injury [Recovering/Resolving]

NARRATIVE: CASE EVENT DATE: 20140901
